FAERS Safety Report 6785837-6 (Version None)
Quarter: 2010Q2

REPORT INFORMATION
  Report Type: 
  Country: None (occurrence: None)
  Receive Date: 20100623
  Receipt Date: 20100614
  Transmission Date: 20101027
  Serious: Yes (Other)
  Sender: FDA-Public Use
  Company Number: JP-PFIZER INC-2010055385

PATIENT
  Age: 75 Year
  Sex: Female
  Weight: 43 kg

DRUGS (10)
  1. LIPITOR [Suspect]
     Indication: BLOOD CHOLESTEROL
     Dosage: 10 MG, 1X/DAY
     Dates: start: 20090928
  2. LIPITOR [Suspect]
     Indication: HYPERLIPIDAEMIA
  3. LASIX [Concomitant]
     Indication: CARDIAC FAILURE CONGESTIVE
     Dosage: 20 MG, 1X/DAY
     Route: 048
     Dates: start: 19960321
  4. MERCAZOLE [Concomitant]
     Indication: HYPERTHYROIDISM
     Dosage: 5 MG, 2X/DAY
     Route: 048
     Dates: start: 19951115, end: 19960801
  5. MERCAZOLE [Concomitant]
     Dosage: 5 MG, 1X/DAY
     Route: 048
     Dates: start: 19960802
  6. VITAMEDIN CAPSULE [Concomitant]
     Indication: NEUROPATHY PERIPHERAL
     Dosage: UNK
     Route: 048
     Dates: start: 19951115
  7. UBIDECARENONE [Concomitant]
     Indication: CARDIAC FAILURE CONGESTIVE
     Dosage: UNK
     Route: 048
     Dates: start: 19951115
  8. CARTEOLOL HYDROCHLORIDE [Concomitant]
     Dosage: 5 MG, 3X/DAY
     Route: 048
     Dates: start: 19951115
  9. GRANDAXIN [Concomitant]
     Indication: AUTONOMIC NERVOUS SYSTEM IMBALANCE
     Dosage: 50 MG, 3X/DAY
     Route: 048
     Dates: start: 19951115
  10. FRANDOL [Concomitant]
     Indication: ANGINA PECTORIS
     Dosage: UNK
     Route: 062
     Dates: start: 19951115

REACTIONS (2)
  - BLOOD CHOLESTEROL INCREASED [None]
  - LOW DENSITY LIPOPROTEIN INCREASED [None]
